FAERS Safety Report 11401813 (Version 1)
Quarter: 2015Q3

REPORT INFORMATION
  Report Type: Spontaneous
  Country: US (occurrence: None)
  Receive Date: 20150820
  Receipt Date: 20150820
  Transmission Date: 20151125
  Serious: Yes (Death)
  Sender: FDA-Public Use
  Company Number: None

PATIENT
  Age: 59 Year
  Sex: Female

DRUGS (5)
  1. HALOPERIDOL. [Concomitant]
     Active Substance: HALOPERIDOL
  2. OLANZAPINE. [Concomitant]
     Active Substance: OLANZAPINE
  3. SERTRALINE [Concomitant]
     Active Substance: SERTRALINE HYDROCHLORIDE
  4. CLOZAPINE 100MG [Suspect]
     Active Substance: CLOZAPINE
     Indication: PSYCHOTIC DISORDER
     Dosage: 5 TABLETS QHS/BEDTIME
     Route: 048
     Dates: start: 20130501, end: 20130707
  5. CLONAZEPAM. [Concomitant]
     Active Substance: CLONAZEPAM

REACTIONS (3)
  - Asphyxia [None]
  - Choking [None]
  - Hypoxic-ischaemic encephalopathy [None]

NARRATIVE: CASE EVENT DATE: 20130710
